FAERS Safety Report 15563393 (Version 1)
Quarter: 2018Q4

REPORT INFORMATION
  Report Type: Report from Study
  Country: US (occurrence: US)
  Receive Date: 20181029
  Receipt Date: 20181029
  Transmission Date: 20190205
  Serious: Yes (Other)
  Sender: FDA-Public Use
  Company Number: US-ACTELION-A-NJ2018-178986

PATIENT
  Age: 40 Year
  Sex: Female

DRUGS (4)
  1. REVATIO [Concomitant]
     Active Substance: SILDENAFIL CITRATE
  2. OPSUMIT [Suspect]
     Active Substance: MACITENTAN
     Indication: PULMONARY HYPERTENSION
     Dosage: 10 MG, QD
     Route: 048
     Dates: start: 20180719
  3. PEPTO-BISMOL [Concomitant]
     Active Substance: BISMUTH SUBSALICYLATE
  4. LASIX [Concomitant]
     Active Substance: FUROSEMIDE

REACTIONS (9)
  - Treatment noncompliance [Unknown]
  - Bilirubin conjugated increased [Recovered/Resolved]
  - Neutrophil count increased [Recovering/Resolving]
  - Colitis [Unknown]
  - Abdominal pain [Unknown]
  - Blood bilirubin increased [Recovered/Resolved]
  - Pyrexia [Unknown]
  - Faeces discoloured [Unknown]
  - White blood cell count increased [Recovering/Resolving]

NARRATIVE: CASE EVENT DATE: 20180901
